FAERS Safety Report 4944831-8 (Version None)
Quarter: 2006Q1

REPORT INFORMATION
  Report Type: 
  Country: None (occurrence: None)
  Receive Date: 20060126
  Receipt Date: 20051020
  Transmission Date: 20060701
  Serious: Yes (Other)
  Sender: FDA-Public Use
  Company Number: 21786

PATIENT
  Sex: Female

DRUGS (2)
  1. PROPOFOL [Suspect]
     Indication: INDUCTION OF ANAESTHESIA
     Dosage: 1500MG
     Dates: start: 20051017
  2. PROPOFOL [Suspect]
     Indication: INDUCTION OF ANAESTHESIA

REACTIONS (1)
  - DRUG INEFFECTIVE [None]
